FAERS Safety Report 9377918 (Version 1)
Quarter: 2013Q3

REPORT INFORMATION
  Report Type: Report from Study
  Country: JP (occurrence: JP)
  Receive Date: 20130701
  Receipt Date: 20130701
  Transmission Date: 20140515
  Serious: Yes (Hospitalization)
  Sender: FDA-Public Use
  Company Number: JP-BAXTER-2013BAX024998

PATIENT
  Age: 60 Year
  Sex: Female

DRUGS (6)
  1. ENDOXAN 1G [Suspect]
     Indication: BREAST CANCER
     Route: 065
     Dates: start: 20130529
  2. PERTUZUMAB [Suspect]
     Indication: BREAST CANCER
     Route: 065
     Dates: start: 20130529
  3. TRASTUZUMAB [Suspect]
     Indication: BREAST CANCER
     Route: 065
     Dates: start: 20130529
  4. DOCETAXEL [Suspect]
     Indication: BREAST CANCER
     Route: 065
     Dates: start: 20130529
  5. 5-FLUOROURACIL [Suspect]
     Indication: BREAST CANCER
     Route: 065
     Dates: start: 20130529
  6. EPIRUBICIN [Suspect]
     Indication: BREAST CANCER
     Route: 065
     Dates: start: 20130529

REACTIONS (2)
  - Dehydration [Not Recovered/Not Resolved]
  - Febrile neutropenia [Not Recovered/Not Resolved]
